FAERS Safety Report 9013478 (Version 1)
Quarter: 2013Q1

REPORT INFORMATION
  Report Type: Spontaneous
  Country: US (occurrence: None)
  Receive Date: 20130107
  Receipt Date: 20130107
  Transmission Date: 20140127
  Serious: Yes (Hospitalization)
  Sender: FDA-Public Use
  Company Number: None

PATIENT
  Age: 73 Year
  Sex: Male
  Weight: 92.5 kg

DRUGS (1)
  1. LISINOPRIL [Suspect]
     Indication: HYPERTENSION
     Route: 048
     Dates: start: 20061228, end: 20121005

REACTIONS (7)
  - Oedema peripheral [None]
  - Pain in extremity [None]
  - Dyspnoea [None]
  - Pain in extremity [None]
  - Hyperkalaemia [None]
  - Blood urea increased [None]
  - Blood creatinine increased [None]
